FAERS Safety Report 17142108 (Version 1)
Quarter: 2019Q4

REPORT INFORMATION
  Report Type: Spontaneous
  Country: CN (occurrence: CN)
  Receive Date: 20191211
  Receipt Date: 20191211
  Transmission Date: 20200122
  Serious: Yes (Other)
  Sender: FDA-Public Use
  Company Number: CN-PFIZER INC-2019531020

PATIENT
  Age: 74 Year
  Sex: Female
  Weight: 65 kg

DRUGS (1)
  1. DIFLUCAN [Suspect]
     Active Substance: FLUCONAZOLE
     Indication: FUNGAL INFECTION
     Dosage: 0.2 G, 1X/DAY
     Route: 041
     Dates: start: 20191126, end: 20191202

REACTIONS (3)
  - Blood pressure increased [Recovered/Resolved]
  - Chills [Recovered/Resolved]
  - Heart rate increased [Recovered/Resolved]

NARRATIVE: CASE EVENT DATE: 20191202
